FAERS Safety Report 25543975 (Version 1)
Quarter: 2025Q3

REPORT INFORMATION
  Report Type: Spontaneous
  Country: EU (occurrence: EU)
  Receive Date: 20250711
  Receipt Date: 20250711
  Transmission Date: 20251021
  Serious: Yes (Other)
  Sender: RANBAXY
  Company Number: EU-EMB-M202310113-2

PATIENT
  Sex: Female
  Weight: 53 kg

DRUGS (6)
  1. VENLAFAXINE [Suspect]
     Active Substance: VENLAFAXINE HYDROCHLORIDE
     Indication: Depression
     Dosage: 37.5 MILLIGRAM, DAILY
     Route: 048
     Dates: start: 202307, end: 202403
  2. MIRTAZAPINE [Suspect]
     Active Substance: MIRTAZAPINE
     Indication: Sleep disorder
     Dosage: 7.5 MILLIGRAM, DAILY, USED FOR APPROXIMATELY 3 WEEKS
     Route: 048
     Dates: start: 202312, end: 202312
  3. LEVOTHYROXINE SODIUM [Concomitant]
     Active Substance: LEVOTHYROXINE SODIUM
     Indication: Hypothyroidism
     Dosage: 75 MCG, DAILY
     Route: 048
     Dates: start: 202307, end: 202403
  4. ASPIRIN [Concomitant]
     Active Substance: ASPIRIN
     Indication: Prophylaxis
     Dosage: 150 MILLIGRAM, DAILY
     Route: 048
     Dates: start: 202307, end: 202403
  5. METFORMIN [Concomitant]
     Active Substance: METFORMIN HYDROCHLORIDE
     Indication: Product used for unknown indication
     Route: 048
     Dates: start: 202307, end: 202309
  6. Humaninsulin [Concomitant]
     Indication: Gestational diabetes
     Dosage: 4 INTERNATIONAL UNIT, DAILY, STARTED IN THE COURSE OF PREGNANCY, WHEN GDM COULDN^T BE MANAGED BY DIE
     Route: 058

REACTIONS (2)
  - Gestational diabetes [Recovered/Resolved]
  - Exposure during pregnancy [Unknown]
